FAERS Safety Report 24746240 (Version 1)
Quarter: 2024Q4

REPORT INFORMATION
  Report Type: Spontaneous
  Country: JP (occurrence: JP)
  Receive Date: 20241218
  Receipt Date: 20241218
  Transmission Date: 20250115
  Serious: Yes (Hospitalization, Other)
  Sender: JOHNSON AND JOHNSON
  Company Number: JP-NShinyaku-EVA20240863701001307081

PATIENT
  Age: 22 Year
  Sex: Male

DRUGS (9)
  1. SELEXIPAG [Suspect]
     Active Substance: SELEXIPAG
     Indication: Pulmonary arterial hypertension
     Route: 048
  2. SELEXIPAG [Suspect]
     Active Substance: SELEXIPAG
     Route: 048
  3. SELEXIPAG [Suspect]
     Active Substance: SELEXIPAG
     Dosage: UNKNOWN, SUSPENDED
     Route: 048
  4. SELEXIPAG [Suspect]
     Active Substance: SELEXIPAG
     Dosage: UNKNOWN, DECREASED
     Route: 048
  5. SELEXIPAG [Suspect]
     Active Substance: SELEXIPAG
     Dosage: DECREASED
     Route: 048
  6. EPOPROSTENOL [Suspect]
     Active Substance: EPOPROSTENOL
     Indication: Pulmonary arterial hypertension
     Dosage: 65 NG/KG/MIN
     Route: 041
     Dates: end: 201801
  7. EPOPROSTENOL [Suspect]
     Active Substance: EPOPROSTENOL
     Dosage: 65 NG/KG/MIN
     Route: 041
     Dates: start: 201801
  8. EPOPROSTENOL [Suspect]
     Active Substance: EPOPROSTENOL
     Dosage: 80 NG/KG/MIN
     Route: 041
     Dates: end: 202206
  9. EPOPROSTENOL [Suspect]
     Active Substance: EPOPROSTENOL
     Dosage: 80 NG/KG/MIN
     Route: 041
     Dates: start: 202206

REACTIONS (7)
  - Vascular device occlusion [Unknown]
  - Pulmonary haemorrhage [Unknown]
  - Suicide attempt [Unknown]
  - Hyperthyroidism [Unknown]
  - Blood pressure decreased [Unknown]
  - Photophobia [Unknown]
  - Pallor [Unknown]

NARRATIVE: CASE EVENT DATE: 20180101
